FAERS Safety Report 5154853-2 (Version None)
Quarter: 2006Q4

REPORT INFORMATION
  Report Type: 
  Country: None (occurrence: None)
  Receive Date: 20061121
  Receipt Date: 20061106
  Transmission Date: 20070319
  Serious: Yes (Hospitalization)
  Sender: FDA-Public Use
  Company Number: GB-ELI_LILLY_AND_COMPANY-GB200611000777

PATIENT
  Age: 63 Year
  Sex: Male
  Weight: 88.1 kg

DRUGS (12)
  1. GEMCITABINE HCL [Suspect]
     Indication: NON-SMALL CELL LUNG CANCER
     Dosage: 2584 MG, UNK
  2. CARBOPLATIN [Suspect]
     Indication: NON-SMALL CELL LUNG CANCER
     Dosage: 510 MG, UNK
  3. OMEPRAZOLE [Concomitant]
     Dosage: 20 MG, DAILY (1/D)
  4. GLICLAZIDE [Concomitant]
     Dosage: 80 MG, 2/D
  5. LISINOPRIL [Concomitant]
     Dosage: 10 MG, DAILY (1/D)
  6. DOSULEPIN [Concomitant]
     Dosage: 75 MG, DAILY (1/D)
  7. FLUTICASONE PROPIONATE [Concomitant]
     Dosage: 500 MG, 2/D
  8. SALBUTAMOL [Concomitant]
     Dosage: 100 MG, 3/D
  9. SALMETEROL [Concomitant]
     Dosage: 25 MEQ, 2/D
  10. FOLIC ACID [Concomitant]
     Dosage: 5 MG, DAILY (1/D)
  11. BECLOMETHASONE DIPROPIONATE [Concomitant]
     Dosage: 100 MG, 3/D
  12. SIMVASTATIN [Concomitant]
     Dosage: 40 MG, DAILY (1/D)

REACTIONS (4)
  - CAMPYLOBACTER INTESTINAL INFECTION [None]
  - CHILLS [None]
  - DYSPNOEA [None]
  - PYREXIA [None]
